FAERS Safety Report 6750306-6 (Version None)
Quarter: 2010Q2

REPORT INFORMATION
  Report Type: 
  Country: None (occurrence: None)
  Receive Date: 20100601
  Receipt Date: 20100524
  Transmission Date: 20101027
  Serious: Yes (Other)
  Sender: FDA-Public Use
  Company Number: MY-WYE-H15281010

PATIENT
  Age: 36 Year
  Sex: Male

DRUGS (5)
  1. EFFEXOR XR [Suspect]
     Indication: BIPOLAR I DISORDER
     Route: 048
     Dates: start: 20080501
  2. ZOLPIDEM [Concomitant]
     Dosage: UNKNOWN
  3. LAMOTRIGINE [Concomitant]
     Dosage: UNKNOWN
  4. QUETIAPINE [Concomitant]
     Dosage: UNKNOWN
  5. ALPRAZOLAM [Concomitant]
     Dosage: UNKNOWN

REACTIONS (1)
  - PANCREATITIS RELAPSING [None]
